FAERS Safety Report 13633852 (Version 1)
Quarter: 2017Q2

REPORT INFORMATION
  Report Type: Spontaneous
  Country: US (occurrence: US)
  Receive Date: 20170531
  Receipt Date: 20170531
  Transmission Date: 20170830
  Serious: No
  Sender: FDA-Public Use
  Company Number: US-ASTELLAS-1583871

PATIENT
  Sex: Male

DRUGS (6)
  1. AMLODIPINE BESYLATE/BENAZEPRIL HYDROCHLORIDE [Concomitant]
     Active Substance: AMLODIPINE BESYLATE\BENAZEPRIL HYDROCHLORIDE
  2. FUROSEMIDE. [Concomitant]
     Active Substance: FUROSEMIDE
  3. FLUTICASONE PROPIONATE. [Concomitant]
     Active Substance: FLUTICASONE PROPIONATE
  4. ATENOLOL. [Concomitant]
     Active Substance: ATENOLOL
  5. TARCEVA [Suspect]
     Active Substance: ERLOTINIB HYDROCHLORIDE
     Indication: HEPATOBILIARY CANCER
     Route: 048
     Dates: start: 20140624
  6. BUMETANIDE. [Concomitant]
     Active Substance: BUMETANIDE

REACTIONS (1)
  - Drug ineffective [Unknown]
